FAERS Safety Report 6507174-7 (Version None)
Quarter: 2009Q4

REPORT INFORMATION
  Report Type: 
  Country: None (occurrence: None)
  Receive Date: 20091221
  Receipt Date: 20091210
  Transmission Date: 20100525
  Serious: Yes (Other)
  Sender: FDA-Public Use
  Company Number: PHHY2009IT46182

PATIENT
  Sex: Female

DRUGS (4)
  1. ZOMETA [Suspect]
     Indication: MULTIPLE MYELOMA
     Dosage: CYCLIC DOSAGE: 1 POSOLOGIC UNIT
     Route: 042
     Dates: start: 20080201, end: 20090401
  2. ASPIRIN [Concomitant]
  3. TRIATEC HCT [Concomitant]
  4. ALKERAN [Concomitant]

REACTIONS (3)
  - DENTAL FISTULA [None]
  - OSTEONECROSIS [None]
  - TOOTH EXTRACTION [None]
